FAERS Safety Report 9758530 (Version 1)
Quarter: 2013Q4

REPORT INFORMATION
  Report Type: Spontaneous
  Country: US (occurrence: None)
  Receive Date: 20131216
  Receipt Date: 20131216
  Transmission Date: 20140711
  Serious: No
  Sender: FDA-Public Use
  Company Number: CABO-13002580

PATIENT
  Age: 82 Year
  Sex: Male

DRUGS (4)
  1. COMETRIQ (CABOZANTINIB) CAPSULE [Suspect]
     Indication: PROSTATE CANCER
     Dosage: 60 MG, QD, ORAL
  2. ZYTIGA [Suspect]
  3. ENZALUTAMIDE [Suspect]
  4. NEUPOGEN (FILGRASTIM) [Concomitant]

REACTIONS (2)
  - Paraesthesia [None]
  - Asthenia [None]
